FAERS Safety Report 25574716 (Version 2)
Quarter: 2025Q3

REPORT INFORMATION
  Report Type: Spontaneous
  Country: EU (occurrence: EU)
  Receive Date: 20250718
  Receipt Date: 20250822
  Transmission Date: 20251021
  Serious: Yes (Death, Hospitalization, Other)
  Sender: TEVA
  Company Number: EU-SANDOZ-SDZ2025CZ045250

PATIENT
  Age: 70 Year
  Sex: Female
  Weight: 70 kg

DRUGS (17)
  1. ONDANSETRON [Suspect]
     Active Substance: ONDANSETRON
     Indication: Product used for unknown indication
     Route: 065
     Dates: start: 20250604, end: 20250604
  2. ITOPRIDE HYDROCHLORIDE [Suspect]
     Active Substance: ITOPRIDE HYDROCHLORIDE
     Indication: Product used for unknown indication
     Route: 065
  3. CALCIUM CARBONATE\CALCIUM PHOSPHATE\PHOSPHORUS\SILICON DIOXIDE\SILVER [Suspect]
     Active Substance: CALCIUM CARBONATE\CALCIUM PHOSPHATE\PHOSPHORUS\SILICON DIOXIDE\SILVER NITRATE
     Indication: Product used for unknown indication
     Route: 065
  4. ZIEXTENZO [Suspect]
     Active Substance: PEGFILGRASTIM-BMEZ
     Indication: Prophylaxis
     Route: 058
     Dates: start: 20250606, end: 20250606
  5. UNASYN [Suspect]
     Active Substance: AMPICILLIN SODIUM\SULBACTAM SODIUM
     Indication: Cellulitis
     Dosage: 1.5G, Q8H
     Route: 042
     Dates: start: 20250609
  6. SOLU-MEDROL [Suspect]
     Active Substance: METHYLPREDNISOLONE SODIUM SUCCINATE
     Indication: Product used for unknown indication
     Route: 065
     Dates: start: 20250604, end: 20250604
  7. SYMBICORT [Suspect]
     Active Substance: BUDESONIDE\FORMOTEROL FUMARATE DIHYDRATE
     Indication: Product used for unknown indication
     Route: 065
  8. ZOFRAN [Suspect]
     Active Substance: ONDANSETRON HYDROCHLORIDE
     Indication: Product used for unknown indication
     Route: 065
     Dates: start: 2025
  9. OMEPRAZOLE [Suspect]
     Active Substance: OMEPRAZOLE
     Indication: Product used for unknown indication
     Route: 065
  10. DECADRON (DEXAMETHASONE SODIUM PHOSPHATE) [Suspect]
     Active Substance: DEXAMETHASONE SODIUM PHOSPHATE
     Indication: Product used for unknown indication
     Route: 065
     Dates: start: 20250604, end: 20250604
  11. LOPERAMIDE HYDROCHLORIDE [Suspect]
     Active Substance: LOPERAMIDE HYDROCHLORIDE
     Indication: Product used for unknown indication
     Route: 065
  12. LEVOTHYROXINE [Suspect]
     Active Substance: LEVOTHYROXINE
     Indication: Product used for unknown indication
     Route: 065
  13. PANTOPRAZOLE SODIUM [Suspect]
     Active Substance: PANTOPRAZOLE SODIUM
     Indication: Product used for unknown indication
     Route: 065
  14. METOPROLOL TARTRATE [Suspect]
     Active Substance: METOPROLOL TARTRATE
     Indication: Product used for unknown indication
     Route: 065
  15. FILGRASTIM [Suspect]
     Active Substance: FILGRASTIM
     Indication: Product used for unknown indication
     Route: 065
     Dates: start: 20250604, end: 20250607
  16. DICLOFENAC POTASSIUM [Suspect]
     Active Substance: DICLOFENAC POTASSIUM
     Indication: Product used for unknown indication
     Route: 065
  17. SACITUZUMAB GOVITECAN [Suspect]
     Active Substance: SACITUZUMAB GOVITECAN
     Indication: Endometrial cancer
     Dosage: QD, POWDER FOR CONCENTRATE FOR SOLUTION FOR INFUSION
     Route: 042
     Dates: start: 20250604, end: 20250604

REACTIONS (2)
  - Neutropenia [Fatal]
  - Cellulitis [Fatal]

NARRATIVE: CASE EVENT DATE: 20250609
